FAERS Safety Report 4277435-3 (Version None)
Quarter: 2004Q1

REPORT INFORMATION
  Report Type: 
  Country: None (occurrence: None)
  Receive Date: 20040122
  Receipt Date: 20040116
  Transmission Date: 20041129
  Serious: Yes (Other)
  Sender: FDA-Public Use
  Company Number: FR-BRISTOL-MYERS SQUIBB COMPANY-12481669

PATIENT
  Sex: Female

DRUGS (1)
  1. COAPROVEL TABS [Suspect]
     Indication: HYPERTENSION
     Route: 048

REACTIONS (1)
  - HEPATITIS [None]
